FAERS Safety Report 6221899-2 (Version None)
Quarter: 2009Q2

REPORT INFORMATION
  Report Type: 
  Country: None (occurrence: None)
  Receive Date: 20090608
  Receipt Date: 20090608
  Transmission Date: 20091009
  Serious: No
  Sender: FDA-Public Use
  Company Number: None

PATIENT
  Sex: Female
  Weight: 71.2147 kg

DRUGS (2)
  1. SIMVASTATIN [Suspect]
     Dosage: 20MG ONCE DAILY PO
     Route: 048
     Dates: start: 20090515
  2. SIMVASTATIN [Suspect]

REACTIONS (1)
  - NIGHTMARE [None]
